FAERS Safety Report 12302243 (Version 2)
Quarter: 2016Q2

REPORT INFORMATION
  Report Type: Spontaneous
  Country: US (occurrence: US)
  Receive Date: 20160425
  Receipt Date: 20160428
  Transmission Date: 20160815
  Serious: Yes (Other)
  Sender: FDA-Public Use
  Company Number: US-SA-2016SA079532

PATIENT
  Age: 67 Year
  Sex: Female

DRUGS (1)
  1. ALLEGRA ALLERGY [Suspect]
     Active Substance: FEXOFENADINE HYDROCHLORIDE
     Dosage: PRODUCT START DATE: 15 DAYS AGO
     Route: 048

REACTIONS (5)
  - Pneumonia [Unknown]
  - Rhinorrhoea [Unknown]
  - Insomnia [Unknown]
  - Drug ineffective [Unknown]
  - Cough [Unknown]
